FAERS Safety Report 4656447-1 (Version None)
Quarter: 2005Q2

REPORT INFORMATION
  Report Type: 
  Country: None (occurrence: None)
  Receive Date: 20050504
  Receipt Date: 20050425
  Transmission Date: 20051028
  Serious: Yes (Hospitalization)
  Sender: FDA-Public Use
  Company Number: 2005UW05514

PATIENT
  Age: 62 Year
  Sex: Female

DRUGS (13)
  1. ARIMIDEX [Suspect]
     Indication: BREAST CANCER METASTATIC
     Dosage: 1 MG QD PO
     Route: 048
     Dates: start: 20050315, end: 20050324
  2. ARIMIDEX [Suspect]
     Indication: BREAST CANCER METASTATIC
     Dosage: 1 MG QD PO
     Route: 048
     Dates: start: 20050401
  3. BLINDED LONAFARNIB STUDY CAPSULES [Suspect]
     Indication: BREAST CANCER METASTATIC
     Dosage: 200 MG BID PO
     Route: 048
     Dates: start: 20050314, end: 20050324
  4. BLINDED LONAFARNIB STUDY CAPSULES [Suspect]
     Indication: BREAST CANCER METASTATIC
     Dosage: 200 MG BID PO
     Route: 048
     Dates: start: 20050401
  5. ENALAPRIL MALEATE [Concomitant]
  6. OMEPRAZOLE [Concomitant]
  7. SANGOBION [Concomitant]
  8. AMITRIPTYLINE [Concomitant]
  9. NAPROXEN [Concomitant]
  10. VALPROATE SODIUM [Concomitant]
  11. THIAMINE HCL [Concomitant]
  12. VITAMIN B6 [Concomitant]
  13. VITAMIN B-12 [Concomitant]

REACTIONS (1)
  - HYPERTHERMIA MALIGNANT [None]
